FAERS Safety Report 8537629-5 (Version None)
Quarter: 2012Q3

REPORT INFORMATION
  Report Type: 
  Country: None (occurrence: None)
  Receive Date: 20120725
  Receipt Date: 20120717
  Transmission Date: 20120928
  Serious: Yes (Other)
  Sender: FDA-Public Use
  Company Number: US-ASTRAZENECA-2011SE58362

PATIENT
  Age: 50 Year
  Sex: Female

DRUGS (3)
  1. NEXIUM [Suspect]
     Route: 048
  2. CRESTOR [Suspect]
     Route: 048
  3. ZOMIG [Suspect]
     Indication: MIGRAINE
     Dosage: 1 TABLET MAY REPEAT ONCE AFTER TWO HOURS 2 TABLETS DAILY
     Route: 048

REACTIONS (4)
  - METASTASES TO CENTRAL NERVOUS SYSTEM [None]
  - MALAISE [None]
  - LUNG CANCER METASTATIC [None]
  - INTENTIONAL DRUG MISUSE [None]
